FAERS Safety Report 19258060 (Version 3)
Quarter: 2024Q2

REPORT INFORMATION
  Report Type: Report from Study
  Country: US (occurrence: US)
  Receive Date: 20210514
  Receipt Date: 20240421
  Transmission Date: 20240716
  Serious: Yes (Other)
  Sender: FDA-Public Use
  Company Number: US-TAKEDA-US202005200

PATIENT
  Age: 21 Year
  Sex: Male

DRUGS (2)
  1. HUMAN IMMUNOGLOBULIN G [Suspect]
     Active Substance: HUMAN IMMUNOGLOBULIN G
     Indication: Primary immunodeficiency syndrome
     Dosage: UNK
     Route: 042
  2. HUMAN IMMUNOGLOBULIN G [Suspect]
     Active Substance: HUMAN IMMUNOGLOBULIN G
     Indication: Bruton^s agammaglobulinaemia

REACTIONS (6)
  - Sinus operation [Unknown]
  - Influenza [Recovering/Resolving]
  - Insurance issue [Unknown]
  - Tendon injury [Unknown]
  - Joint injury [Unknown]
  - Product use issue [Unknown]

NARRATIVE: CASE EVENT DATE: 20240124
